FAERS Safety Report 21153934 (Version 1)
Quarter: 2022Q3

REPORT INFORMATION
  Report Type: Spontaneous
  Country: NL (occurrence: None)
  Receive Date: 20220801
  Receipt Date: 20220801
  Transmission Date: 20221027
  Serious: Yes (Other)
  Sender: FDA-Public Use
  Company Number: NL-ROCHE-3144729

PATIENT
  Sex: Female

DRUGS (1)
  1. OCREVUS [Suspect]
     Active Substance: OCRELIZUMAB
     Indication: Product used for unknown indication
     Route: 065
     Dates: start: 20220120

REACTIONS (4)
  - Incorrect product administration duration [Unknown]
  - Cystitis [Unknown]
  - Retinitis [Unknown]
  - Visual field defect [Unknown]

NARRATIVE: CASE EVENT DATE: 20220401
